FAERS Safety Report 24210599 (Version 1)
Quarter: 2024Q3

REPORT INFORMATION
  Report Type: Spontaneous
  Country: FR (occurrence: FR)
  Receive Date: 20240814
  Receipt Date: 20240814
  Transmission Date: 20241017
  Serious: Yes (Hospitalization)
  Sender: TEVA
  Company Number: None

PATIENT
  Age: 93 Year
  Sex: Female
  Weight: 44 kg

DRUGS (9)
  1. FUROSEMIDE [Suspect]
     Active Substance: FUROSEMIDE
     Indication: Hypertrophic cardiomyopathy
     Dosage: TIME INTERVAL: TOTAL: 2.1.0?(40 MG)
     Route: 048
  2. TRAMADOL [Concomitant]
     Active Substance: TRAMADOL\TRAMADOL HYDROCHLORIDE
     Indication: Pain
     Dosage: 1 TABLET 3 TIMES A DAY IF PAIN IS NOT RELIEVED BY DOLIPRANE
     Route: 048
  3. ATORVASTATIN [Concomitant]
     Active Substance: ATORVASTATIN
     Indication: Dyslipidaemia
     Dosage: TIME INTERVAL: TOTAL: 0.0.1?(10 MG)
     Route: 048
  4. BISOPROLOL FUMARATE [Concomitant]
     Active Substance: BISOPROLOL FUMARATE
     Indication: Hypertrophic cardiomyopathy
     Dosage: TIME INTERVAL: TOTAL: 1.0.0?(1.25 MG)
     Route: 048
  5. OXAZEPAM [Concomitant]
     Active Substance: OXAZEPAM
     Indication: Product used for unknown indication
     Dosage: 1 TABLET IN THE EVENING
     Route: 048
  6. RAMIPRIL [Suspect]
     Active Substance: RAMIPRIL
     Indication: Hypertension
     Dosage: TIME INTERVAL: TOTAL: 1.0.0?(1.25 MG)
     Route: 048
  7. PREVISCAN [Concomitant]
     Indication: Atrial fibrillation
     Dosage: TIME INTERVAL: TOTAL: 0.0.3/4?SCORED TABLET
     Route: 048
  8. POLYETHYLENE GLYCOLS [Concomitant]
     Active Substance: POLYETHYLENE GLYCOLS
     Indication: Constipation
     Dosage: TIME INTERVAL: TOTAL: 1.0.0??MACROGOL (DISTEARATE)
     Route: 048
  9. DOLIPRANE [Concomitant]
     Active Substance: ACETAMINOPHEN
     Indication: Pain
     Dosage: 2 CAPSULES 3 TIMES A DAY IF NECESSARY
     Route: 048

REACTIONS (2)
  - Hyperkalaemia [Recovering/Resolving]
  - Acute kidney injury [Recovered/Resolved]

NARRATIVE: CASE EVENT DATE: 20180620
